FAERS Safety Report 5915677-9 (Version None)
Quarter: 2008Q4

REPORT INFORMATION
  Report Type: 
  Country: None (occurrence: None)
  Receive Date: 20081010
  Receipt Date: 20080930
  Transmission Date: 20090506
  Serious: Yes (Hospitalization)
  Sender: FDA-Public Use
  Company Number: FR-ASTRAZENECA-2008CG01424

PATIENT
  Age: 29096 Day
  Sex: Female

DRUGS (6)
  1. XYLOCAINE W/ EPINEPHRINE [Suspect]
     Indication: LOCAL ANAESTHESIA
     Route: 065
     Dates: start: 20080623, end: 20080623
  2. NEXIUM [Concomitant]
  3. PREVISCAN [Concomitant]
  4. ARTISIAL [Concomitant]
  5. ACETAMINOPHEN [Concomitant]
  6. OXAZEPAM [Concomitant]

REACTIONS (1)
  - FACE OEDEMA [None]
